FAERS Safety Report 20743670 (Version 2)
Quarter: 2022Q2

REPORT INFORMATION
  Report Type: Report from Study
  Country: US (occurrence: None)
  Receive Date: 20220425
  Receipt Date: 20220512
  Transmission Date: 20220721
  Serious: Yes (Death, Hospitalization)
  Sender: FDA-Public Use
  Company Number: US-ROCHE-2941329

PATIENT
  Age: 79 Year
  Sex: Male
  Weight: 113.9 kg

DRUGS (2)
  1. BEVACIZUMAB [Suspect]
     Active Substance: BEVACIZUMAB
     Indication: Non-small cell lung cancer
     Dosage: DOSE OF LAST ADMINISTRATION PRIRO TO FEVER : 15/SEP/2021?(ON 14/MAR/2022, HE RECEIVED MOST RECENT DO
     Route: 042
     Dates: start: 20210915
  2. OSIMERTINIB [Suspect]
     Active Substance: OSIMERTINIB
     Indication: Non-small cell lung cancer
     Dosage: LAST DOSE: 05/OCT/2021? ON 27/MAR/2022, HE RECEIVED MOST RECENT DOSE OF OSIMERTINIB,  PRIOR TO STROK
     Route: 065
     Dates: start: 20210915, end: 20211011

REACTIONS (6)
  - Embolism arterial [Fatal]
  - Cerebrovascular accident [Fatal]
  - Pneumonia [Recovered/Resolved]
  - Pyrexia [Recovered/Resolved]
  - Sepsis [Unknown]
  - Haemorrhage intracranial [Unknown]

NARRATIVE: CASE EVENT DATE: 20211005
